FAERS Safety Report 16500079 (Version 4)
Quarter: 2020Q3

REPORT INFORMATION
  Report Type: Report from Study
  Country: US (occurrence: US)
  Receive Date: 20190701
  Receipt Date: 20200820
  Transmission Date: 20201102
  Serious: Yes (Hospitalization, Other)
  Sender: FDA-Public Use
  Company Number: PHHY2019US145880

PATIENT
  Age: 65 Year
  Sex: Male
  Weight: 73.8 kg

DRUGS (20)
  1. GSK2118436 [Suspect]
     Active Substance: DABRAFENIB
     Indication: THYROID CANCER
     Dosage: UNK
     Route: 065
     Dates: start: 20180911
  2. POTASSIUM;SODIUM PHOSPHATE [Concomitant]
     Indication: ELECTROLYTE IMBALANCE
     Dosage: 1 DF (250/1100/180 MG), UNK
     Route: 065
     Dates: start: 20190614, end: 20190624
  3. GSK1120212 [Suspect]
     Active Substance: TRAMETINIB
     Dosage: 2 MG, QD (G?TUBE)
     Route: 065
     Dates: start: 20200227, end: 20200330
  4. GSK2118436 [Suspect]
     Active Substance: DABRAFENIB
     Dosage: 150 MG, BID (VIA G TUBE)
     Route: 050
     Dates: start: 20190514
  5. PEMBROLIZUMAB. [Concomitant]
     Active Substance: PEMBROLIZUMAB
     Indication: THYROID CANCER
     Dosage: 200 MG
     Route: 065
     Dates: start: 20191022, end: 20200330
  6. GSK1120212 [Suspect]
     Active Substance: TRAMETINIB
     Indication: THYROID CANCER
     Dosage: UNK
     Route: 065
     Dates: start: 20180911
  7. GSK1120212 [Suspect]
     Active Substance: TRAMETINIB
     Dosage: 2 MG, BID (G?TUBE)
     Route: 050
     Dates: start: 20190617
  8. GSK2118436 [Suspect]
     Active Substance: DABRAFENIB
     Dosage: 150 MG, BID (VIA G TUBE)
     Route: 065
     Dates: start: 20200618
  9. APIXABAN [Suspect]
     Active Substance: APIXABAN
     Indication: PRODUCT USED FOR UNKNOWN INDICATION
     Route: 065
  10. GSK1120212 [Suspect]
     Active Substance: TRAMETINIB
     Dosage: 2 MG, BID (G?TUBE)
     Route: 050
     Dates: start: 20190514
  11. GSK2118436 [Suspect]
     Active Substance: DABRAFENIB
     Dosage: 150 MG, BID (VIA G TUBE)
     Route: 065
     Dates: start: 20200227
  12. PANTOPRAZOLE [Concomitant]
     Active Substance: PANTOPRAZOLE
     Indication: GASTRITIS
     Dosage: 2.5 ML, UNK
     Route: 065
     Dates: start: 20190420
  13. ABRAXANE [Concomitant]
     Active Substance: PACLITAXEL
     Indication: PRODUCT USED FOR UNKNOWN INDICATION
     Route: 065
  14. GSK1120212 [Suspect]
     Active Substance: TRAMETINIB
     Dosage: 2 MG, QD (G? TUBE)
     Route: 065
     Dates: start: 20200618, end: 20200715
  15. GSK2118436 [Suspect]
     Active Substance: DABRAFENIB
     Dosage: 150 MG, BID (VIA G TUBE)
     Route: 050
     Dates: start: 20190617
  16. GSK1120212 [Suspect]
     Active Substance: TRAMETINIB
     Dosage: 2 MG, QD (VIA G TUBE)
     Route: 048
     Dates: start: 20190327
  17. GSK1120212 [Suspect]
     Active Substance: TRAMETINIB
     Dosage: 2 MG, BID (G?TUBE)
     Route: 050
     Dates: start: 20190617
  18. GSK2118436 [Suspect]
     Active Substance: DABRAFENIB
     Dosage: 150 MG, BID (VIA G TUBE)
     Route: 050
     Dates: start: 20190327
  19. PANTOPRAZOLE [Concomitant]
     Active Substance: PANTOPRAZOLE
     Dosage: 2.5 ML, UNK
     Route: 065
     Dates: start: 20190423
  20. ATEZOLIZUMAB. [Concomitant]
     Active Substance: ATEZOLIZUMAB
     Indication: PRODUCT USED FOR UNKNOWN INDICATION
     Route: 065

REACTIONS (50)
  - Hypertension [Not Recovered/Not Resolved]
  - Anaemia [Recovered/Resolved]
  - Blood alkaline phosphatase increased [Recovered/Resolved]
  - Blood bilirubin increased [Recovered/Resolved]
  - Pharyngitis [Recovering/Resolving]
  - Blood alkaline phosphatase increased [Not Recovered/Not Resolved]
  - Rash [Not Recovered/Not Resolved]
  - Lymphocyte count decreased [Not Recovered/Not Resolved]
  - White blood cell count decreased [Not Recovered/Not Resolved]
  - Neutrophil count decreased [Not Recovered/Not Resolved]
  - Anaemia [Not Recovered/Not Resolved]
  - Hypoalbuminaemia [Not Recovered/Not Resolved]
  - Decreased appetite [Recovered/Resolved]
  - Oedema peripheral [Not Recovered/Not Resolved]
  - Hypertension [Not Recovered/Not Resolved]
  - Gastric haemorrhage [Unknown]
  - Hyperglycaemia [Not Recovered/Not Resolved]
  - Dysphonia [Not Recovered/Not Resolved]
  - Blood chloride increased [Recovered/Resolved]
  - Pain [Recovered/Resolved]
  - Blood urea increased [Recovered/Resolved]
  - Gastric fistula [Recovered/Resolved]
  - Weight decreased [Not Recovered/Not Resolved]
  - Dysphonia [Not Recovered/Not Resolved]
  - Aspartate aminotransferase increased [Not Recovered/Not Resolved]
  - Dry skin [Not Recovered/Not Resolved]
  - Anaemia [Not Recovered/Not Resolved]
  - Blood chloride increased [Recovered/Resolved]
  - Hyponatraemia [Not Recovered/Not Resolved]
  - Hypothyroidism [Not Recovered/Not Resolved]
  - Blood urea increased [Not Recovered/Not Resolved]
  - Aspartate aminotransferase increased [Recovered/Resolved]
  - Diarrhoea [Not Recovered/Not Resolved]
  - Productive cough [Recovered/Resolved]
  - Dysphagia [Not Recovered/Not Resolved]
  - Hypoalbuminaemia [Recovered/Resolved]
  - Pruritus [Not Recovered/Not Resolved]
  - Transferrin decreased [Not Recovered/Not Resolved]
  - Blood folate decreased [Not Recovered/Not Resolved]
  - Weight increased [Not Recovered/Not Resolved]
  - Anion gap decreased [Recovered/Resolved]
  - Pruritus [Recovered/Resolved]
  - Dysphagia [Not Recovered/Not Resolved]
  - Fatigue [Not Recovered/Not Resolved]
  - Platelet count decreased [Not Recovered/Not Resolved]
  - Protein total decreased [Not Recovered/Not Resolved]
  - Aspartate aminotransferase increased [Recovered/Resolved]
  - Blood iron decreased [Not Recovered/Not Resolved]
  - Productive cough [Not Recovered/Not Resolved]
  - Skin abrasion [Not Recovered/Not Resolved]

NARRATIVE: CASE EVENT DATE: 20180920
